FAERS Safety Report 20535867 (Version 1)
Quarter: 2022Q1

REPORT INFORMATION
  Report Type: Spontaneous
  Country: GB (occurrence: GB)
  Receive Date: 20220302
  Receipt Date: 20220302
  Transmission Date: 20220423
  Serious: Yes (Other)
  Sender: FDA-Public Use
  Company Number: GB-BAYER-2021A217135

PATIENT
  Age: 69 Year
  Sex: Female

DRUGS (1)
  1. RIVAROXABAN [Suspect]
     Active Substance: RIVAROXABAN
     Indication: Pulmonary embolism
     Dosage: UNK
     Route: 048

REACTIONS (3)
  - Haemorrhagic cyst [Recovered/Resolved]
  - Spinal meningeal cyst [Unknown]
  - Cauda equina syndrome [Recovered/Resolved]
